FAERS Safety Report 14378385 (Version 3)
Quarter: 2018Q4

REPORT INFORMATION
  Report Type: Report from Study
  Country: US (occurrence: US)
  Receive Date: 20180111
  Receipt Date: 20181010
  Transmission Date: 20190204
  Serious: Yes (Hospitalization, Other)
  Sender: FDA-Public Use
  Company Number: US-BRISTOL-MYERS SQUIBB COMPANY-BMS-2018-000973

PATIENT
  Age: 72 Year
  Sex: Female

DRUGS (1)
  1. ABATACEPT [Suspect]
     Active Substance: ABATACEPT
     Indication: PRODUCT USED FOR UNKNOWN INDICATION
     Dosage: 125 MG/ML, QWK
     Route: 058
     Dates: start: 20160929

REACTIONS (6)
  - Swelling face [Unknown]
  - Oral disorder [Unknown]
  - Pain [Unknown]
  - Adverse event [Unknown]
  - Diabetes mellitus [Unknown]
  - Toothache [Unknown]

NARRATIVE: CASE EVENT DATE: 20180103
